FAERS Safety Report 8852756 (Version 4)
Quarter: 2013Q4

REPORT INFORMATION
  Report Type: Spontaneous
  Country: JP (occurrence: JP)
  Receive Date: 20121022
  Receipt Date: 20131206
  Transmission Date: 20140711
  Serious: Yes (Other)
  Sender: FDA-Public Use
  Company Number: JP-EISAI INC-E7389-03124-SPO-JP

PATIENT
  Age: 69 Year
  Sex: Female

DRUGS (2)
  1. HALAVEN [Suspect]
     Indication: BREAST CANCER
     Dosage: UNKNOWN
     Route: 041
     Dates: start: 20120419, end: 2012
  2. HALAVEN [Suspect]
     Dosage: 1 MG
     Route: 041
     Dates: start: 20121017

REACTIONS (1)
  - Laryngeal oedema [Recovered/Resolved]
